FAERS Safety Report 8947203 (Version 1)
Quarter: 2012Q4

REPORT INFORMATION
  Report Type: 
  Country: DE (occurrence: DE)
  Receive Date: 20121205
  Receipt Date: 20121205
  Transmission Date: 20130627
  Serious: Yes (Other)
  Sender: FDA-Public Use
  Company Number: DE-ROCHE-1163420

PATIENT
  Age: 75 Year
  Sex: Female
  Weight: 83 kg

DRUGS (8)
  1. KEVATRIL [Suspect]
     Indication: PROPHYLAXIS OF NAUSEA AND VOMITING
     Route: 042
     Dates: start: 20120711, end: 20120713
  2. KEVATRIL [Suspect]
     Route: 042
     Dates: start: 20120507, end: 20120511
  3. KEVATRIL [Suspect]
     Route: 042
     Dates: start: 20120410, end: 20120418
  4. KEVATRIL [Suspect]
     Route: 042
     Dates: start: 20120312, end: 20120320
  5. VIDAZA [Concomitant]
     Indication: MYELODYSPLASTIC SYNDROME
     Route: 058
     Dates: start: 20120312, end: 20120320
  6. VIDAZA [Concomitant]
     Route: 058
     Dates: start: 20120507, end: 20120511
  7. VIDAZA [Concomitant]
     Route: 058
     Dates: start: 20120711, end: 20120713
  8. VIDAZA [Concomitant]
     Route: 058
     Dates: start: 20120410, end: 20120418

REACTIONS (1)
  - Optic ischaemic neuropathy [Recovered/Resolved]
